FAERS Safety Report 8983665 (Version 1)
Quarter: 2012Q4

REPORT INFORMATION
  Report Type: 
  Country: US (occurrence: US)
  Receive Date: 20121224
  Receipt Date: 20121224
  Transmission Date: 20130627
  Serious: Yes (Other)
  Sender: FDA-Public Use
  Company Number: US-AMGEN-USASP2012082262

PATIENT
  Age: 77 Year
  Sex: Male

DRUGS (1)
  1. ENBREL [Suspect]
     Indication: PRODUCT USED FOR UNKNOWN INDICATION
     Dosage: 50 mg, qwk
     Route: 058
     Dates: end: 201210

REACTIONS (4)
  - Infected bites [Not Recovered/Not Resolved]
  - Infection [Not Recovered/Not Resolved]
  - Arthropod bite [Not Recovered/Not Resolved]
  - Herpes virus infection [Not Recovered/Not Resolved]
